FAERS Safety Report 8481273-5 (Version None)
Quarter: 2012Q2

REPORT INFORMATION
  Report Type: 
  Country: None (occurrence: None)
  Receive Date: 20120626
  Receipt Date: 20120626
  Transmission Date: 20120825
  Serious: Yes (Hospitalization)
  Sender: FDA-Public Use
  Company Number: None

PATIENT
  Age: 53 Year
  Sex: Female
  Weight: 74 kg

DRUGS (1)
  1. INFLIXIMAB [Suspect]
     Indication: CROHN'S DISEASE
     Dosage: 365 MG ONCE IV
     Route: 042
     Dates: start: 20111229, end: 20111229

REACTIONS (23)
  - TEMPERATURE INTOLERANCE [None]
  - PHARYNGEAL ABSCESS [None]
  - PHARYNGITIS [None]
  - ARTHRALGIA [None]
  - DYSPNOEA [None]
  - BACK PAIN [None]
  - HYPOPHAGIA [None]
  - TYPE IV HYPERSENSITIVITY REACTION [None]
  - PYREXIA [None]
  - HYPERHIDROSIS [None]
  - SINUS TACHYCARDIA [None]
  - DEHYDRATION [None]
  - CHILLS [None]
  - MALAISE [None]
  - PAIN [None]
  - FATIGUE [None]
  - DYSPHAGIA [None]
  - SYNCOPE [None]
  - EPIGLOTTITIS [None]
  - ERYTHEMA [None]
  - OROPHARYNGEAL PAIN [None]
  - ELECTROCARDIOGRAM T WAVE ABNORMAL [None]
  - SERUM SICKNESS [None]
